FAERS Safety Report 6436634-2 (Version None)
Quarter: 2009Q4

REPORT INFORMATION
  Report Type: 
  Country: None (occurrence: None)
  Receive Date: 20091111
  Receipt Date: 20091027
  Transmission Date: 20100525
  Serious: Yes (Life-Threatening, Hospitalization)
  Sender: FDA-Public Use
  Company Number: KR-B.I. PHARMACEUTICALS,INC./RIDGEFIELD-2009-DE-06711GD

PATIENT
  Age: 49 Year
  Sex: Female

DRUGS (3)
  1. PRAMIPEXOLE [Suspect]
     Indication: PARKINSON'S DISEASE
  2. AMANTADINE HCL [Suspect]
     Indication: PARKINSON'S DISEASE
  3. CARBIDOPA AND LEVODOPA [Suspect]
     Indication: PARKINSON'S DISEASE

REACTIONS (7)
  - ACUTE RESPIRATORY FAILURE [None]
  - DYSKINESIA [None]
  - DYSPHAGIA [None]
  - HALLUCINATION, VISUAL [None]
  - ON AND OFF PHENOMENON [None]
  - PNEUMONIA ASPIRATION [None]
  - VOCAL CORD PARALYSIS [None]
